FAERS Safety Report 17454717 (Version 1)
Quarter: 2020Q1

REPORT INFORMATION
  Report Type: Spontaneous
  Country: US (occurrence: US)
  Receive Date: 20200224
  Receipt Date: 20200224
  Transmission Date: 20200409
  Serious: Yes (Disabling)
  Sender: FDA-Public Use
  Company Number: None

PATIENT
  Age: 69 Year
  Sex: Female
  Weight: 69.75 kg

DRUGS (1)
  1. REPATHA [Suspect]
     Active Substance: EVOLOCUMAB
     Indication: BLOOD CHOLESTEROL INCREASED
     Dosage: ?          QUANTITY:1 INJECTION(S);OTHER FREQUENCY:EVERY TWO WEEKS;?
     Route: 058
     Dates: start: 20200207, end: 20200221

REACTIONS (9)
  - Breath odour [None]
  - Balance disorder [None]
  - Fatigue [None]
  - Headache [None]
  - Dizziness [None]
  - Malaise [None]
  - Vision blurred [None]
  - Constipation [None]
  - Blood pressure increased [None]

NARRATIVE: CASE EVENT DATE: 20200207
